FAERS Safety Report 10060155 (Version 1)
Quarter: 2014Q2

REPORT INFORMATION
  Report Type: Spontaneous
  Country: US (occurrence: US)
  Receive Date: 20140404
  Receipt Date: 20140404
  Transmission Date: 20141212
  Serious: Yes (Hospitalization, Disabling)
  Sender: FDA-Public Use
  Company Number: US-ELI_LILLY_AND_COMPANY-US201404000844

PATIENT
  Age: 83 Year
  Sex: Female

DRUGS (8)
  1. HUMALOG LISPRO [Suspect]
     Indication: TYPE 2 DIABETES MELLITUS
     Dosage: 38 U, TID
  2. METOPROLOL [Concomitant]
     Dosage: UNK, BID
  3. OMEPRAZOLE [Concomitant]
     Dosage: UNK, QD
  4. SYNTHROID [Concomitant]
  5. FENOFIBRATE [Concomitant]
  6. NIFEDIPINE [Concomitant]
  7. SIMVASTATIN [Concomitant]
     Dosage: UNK, EACH EVENING
  8. LISINOPRIL [Concomitant]
     Dosage: UNK, EACH EVENING

REACTIONS (4)
  - Limb injury [Recovered/Resolved with Sequelae]
  - Road traffic accident [Recovered/Resolved]
  - Mobility decreased [Not Recovered/Not Resolved]
  - Foreign body [Unknown]
